FAERS Safety Report 9061212 (Version 1)
Quarter: 2013Q1

REPORT INFORMATION
  Report Type: Spontaneous
  Country: GB (occurrence: GB)
  Receive Date: 20130204
  Receipt Date: 20130204
  Transmission Date: 20140127
  Serious: Yes (Other)
  Sender: FDA-Public Use
  Company Number: GB-NOVOPROD-369622

PATIENT
  Sex: Male

DRUGS (1)
  1. NOVOMIX 30 FLEXPEN [Suspect]
     Indication: DIABETES MELLITUS
     Route: 065

REACTIONS (4)
  - Unresponsive to stimuli [Unknown]
  - Confusional state [Unknown]
  - Incoherent [Unknown]
  - Blood glucose increased [Unknown]
